FAERS Safety Report 25287173 (Version 1)
Quarter: 2025Q2

REPORT INFORMATION
  Report Type: Spontaneous
  Country: CN (occurrence: CN)
  Receive Date: 20250509
  Receipt Date: 20250509
  Transmission Date: 20250716
  Serious: Yes (Death, Life-Threatening, Hospitalization, Other)
  Sender: ACCORD
  Company Number: CN-Accord-483284

PATIENT
  Age: 71 Year
  Sex: Male

DRUGS (4)
  1. GEMCITABINE [Suspect]
     Active Substance: GEMCITABINE
     Indication: Squamous cell carcinoma of lung
     Dates: start: 20241021
  2. SINTILIMAB [Suspect]
     Active Substance: SINTILIMAB
     Indication: Squamous cell carcinoma of lung
     Dates: start: 20241021
  3. GEMCITABINE [Suspect]
     Active Substance: GEMCITABINE
     Indication: Disease progression
     Dates: start: 20241021
  4. SINTILIMAB [Suspect]
     Active Substance: SINTILIMAB
     Indication: Disease progression
     Dates: start: 20241021

REACTIONS (2)
  - Immune-mediated myocarditis [Fatal]
  - Acute myocardial infarction [Unknown]
